FAERS Safety Report 5218773-7 (Version None)
Quarter: 2007Q1

REPORT INFORMATION
  Report Type: 
  Country: None (occurrence: None)
  Receive Date: 20070123
  Receipt Date: 20070109
  Transmission Date: 20070707
  Serious: Yes (Hospitalization)
  Sender: FDA-Public Use
  Company Number: 231867

PATIENT
  Age: 57 Year
  Sex: Male

DRUGS (13)
  1. AVASTIN [Suspect]
     Indication: RENAL CELL CARCINOMA STAGE UNSPECIFIED
     Dosage: 1310 MG,
  2. PROLEUKIN [Suspect]
     Indication: RENAL CELL CARCINOMA STAGE UNSPECIFIED
     Dosage: 76.6 MIU, Q8H, INTRAVENOUS
     Route: 042
     Dates: start: 20061003, end: 20061022
  3. ATENOLOL [Concomitant]
  4. ACIPHEX [Concomitant]
  5. GLYBURIDE [Concomitant]
  6. NORVASC [Concomitant]
  7. LASIX [Concomitant]
  8. LORAZEPAM [Concomitant]
  9. BENADRYL [Concomitant]
  10. COMPAZINE [Concomitant]
  11. CIPRO [Concomitant]
  12. LOMOTIL [Concomitant]
  13. MOUTHWASH NOS (MOUTHWASH NOS) [Concomitant]

REACTIONS (8)
  - BLOOD CREATININE INCREASED [None]
  - DEHYDRATION [None]
  - DIARRHOEA [None]
  - HAEMATOCRIT DECREASED [None]
  - HYPOGLYCAEMIA [None]
  - IMPAIRED HEALING [None]
  - ORAL INTAKE REDUCED [None]
  - SKIN ULCER [None]
